FAERS Safety Report 6552847-3 (Version None)
Quarter: 2010Q1

REPORT INFORMATION
  Report Type: 
  Country: None (occurrence: None)
  Receive Date: 20100122
  Receipt Date: 20090420
  Transmission Date: 20100710
  Serious: Yes (Death)
  Sender: FDA-Public Use
  Company Number: 004504

PATIENT

DRUGS (4)
  1. PREDNISOLONE [Suspect]
     Indication: VASCULITIS NECROTISING
     Dosage: 1 MG/KG, 1 MG/KG/DAY, ORAL, 15 MG, 15 MG/DAY, ORAL, 7.5 MG, 705 MG/DAY ORAL
     Route: 048
  2. PREDNISOLONE [Suspect]
     Indication: VASCULITIS NECROTISING
     Dosage: 1 MG/KG, 1 MG/KG/DAY, ORAL, 15 MG, 15 MG/DAY, ORAL, 7.5 MG, 705 MG/DAY ORAL
     Route: 048
  3. PREDNISOLONE [Suspect]
     Indication: VASCULITIS NECROTISING
     Dosage: 1 MG/KG, 1 MG/KG/DAY, ORAL, 15 MG, 15 MG/DAY, ORAL, 7.5 MG, 705 MG/DAY ORAL
     Route: 048
  4. CYCLOPHOSPHAMIDE [Suspect]
     Indication: VASCULITIS NECROTISING
     Dosage: MIN 2 MG/KG/DAY, MAX 150 MG/DAY FO RMIN 3 MONTHS MAX 6 MONTHS

REACTIONS (1)
  - DEATH [None]
